FAERS Safety Report 8401074-3 (Version None)
Quarter: 2012Q2

REPORT INFORMATION
  Report Type: 
  Country: None (occurrence: None)
  Receive Date: 20120529
  Receipt Date: 20120529
  Transmission Date: 20120825
  Serious: No
  Sender: FDA-Public Use
  Company Number: None

PATIENT
  Age: 78 Year
  Sex: Male

DRUGS (1)
  1. LOSARTAN POTASSIUM [Suspect]
     Indication: HYPERTENSION
     Dosage: ONE TABLET -50 MG- ONCE A DAY PO
     Route: 048
     Dates: start: 20120321, end: 20120328

REACTIONS (3)
  - PRODUCT SUBSTITUTION ISSUE [None]
  - HYPERTENSION [None]
  - HEART RATE INCREASED [None]
